FAERS Safety Report 5009521-4 (Version None)
Quarter: 2006Q2

REPORT INFORMATION
  Report Type: 
  Country: None (occurrence: None)
  Receive Date: 20060522
  Receipt Date: 20060509
  Transmission Date: 20061013
  Serious: Yes (Other)
  Sender: FDA-Public Use
  Company Number: 2006061947

PATIENT
  Age: 83 Year
  Sex: Female
  Weight: 97.5234 kg

DRUGS (7)
  1. NEURONTIN [Suspect]
     Indication: NEURALGIA
     Dosage: (100 MG), ORAL
     Route: 048
     Dates: end: 20060501
  2. CELEBREX [Suspect]
     Indication: PAIN
     Dosage: 400 MG (200 MG, 2 IN 1 D), ORAL
     Route: 048
     Dates: start: 20060101
  3. LYRICA [Suspect]
     Indication: NEURALGIA
     Dosage: 150 MG (75 MG, 2 IN 1 D), ORAL
     Route: 048
     Dates: start: 20060501
  4. SINEMET [Suspect]
     Indication: RESTLESS LEGS SYNDROME
     Dosage: 10/100 TABLET TWICE A DAY (2 IN 1 D), ORAL
     Route: 048
  5. OXYCODONE (OXYCODONE) [Suspect]
     Indication: PAIN
     Dosage: 20 MG (10 MG, 2 IN 1 D), ORAL
     Route: 048
     Dates: start: 20060101
  6. AVAPRO [Suspect]
     Indication: HYPERTENSION
  7. HYDROCHLOROTHIAZIDE [Concomitant]

REACTIONS (7)
  - CATARACT [None]
  - DISTURBANCE IN ATTENTION [None]
  - DRUG INEFFECTIVE [None]
  - DYSPHAGIA [None]
  - NEUROPATHY [None]
  - PAIN [None]
  - VISION BLURRED [None]
